FAERS Safety Report 5885336-X (Version None)
Quarter: 2008Q3

REPORT INFORMATION
  Report Type: 
  Country: None (occurrence: None)
  Receive Date: 20080916
  Receipt Date: 20080904
  Transmission Date: 20090109
  Serious: Yes (Other)
  Sender: FDA-Public Use
  Company Number: FR-PFIZER INC-2008075098

PATIENT
  Sex: Female

DRUGS (1)
  1. LYRICA [Suspect]

REACTIONS (2)
  - HYPOTENSION [None]
  - WEIGHT DECREASED [None]
